FAERS Safety Report 4459660-1 (Version None)
Quarter: 2004Q3

REPORT INFORMATION
  Report Type: 
  Country: None (occurrence: None)
  Receive Date: 20040914
  Receipt Date: 20040312
  Transmission Date: 20050211
  Serious: Yes (Hospitalization)
  Sender: FDA-Public Use
  Company Number: 2004030001

PATIENT
  Age: 6 Year
  Sex: Female

DRUGS (3)
  1. FELBATOL [Suspect]
     Indication: CONVULSION
     Dosage: 1020 MG REDUCED TO 1000MG DAILY
     Dates: start: 20030901
  2. LAMICTAL [Suspect]
     Indication: CONVULSION
     Dosage: 115MG BID, NASOGASTRIC
     Route: 045
  3. TOPAMAX [Concomitant]

REACTIONS (2)
  - CRYING [None]
  - DRUG INTERACTION [None]
